FAERS Safety Report 20720785 (Version 2)
Quarter: 2022Q2

REPORT INFORMATION
  Report Type: Spontaneous
  Country: US (occurrence: US)
  Receive Date: 20220418
  Receipt Date: 20220504
  Transmission Date: 20220721
  Serious: Yes (Other)
  Sender: FDA-Public Use
  Company Number: US-PFIZER INC-202200539176

PATIENT
  Age: 77 Year
  Sex: Male
  Weight: 102.06 kg

DRUGS (6)
  1. TIKOSYN [Suspect]
     Active Substance: DOFETILIDE
     Indication: Heart rate irregular
     Dosage: 0.5 MG, 2X/DAY, NORMALLY TAKEN WITH FOOD
     Dates: start: 2013
  2. TIKOSYN [Suspect]
     Active Substance: DOFETILIDE
     Indication: Atrial fibrillation
  3. METOPROLOL [Suspect]
     Active Substance: METOPROLOL
     Indication: Atrial fibrillation
     Dosage: 100 MG, 2X/DAY
     Dates: start: 2003
  4. METOPROLOL [Suspect]
     Active Substance: METOPROLOL
     Indication: Heart rate irregular
  5. PRADAXA [Suspect]
     Active Substance: DABIGATRAN ETEXILATE MESYLATE
     Indication: Atrial fibrillation
     Dosage: 150 MG, 2X/DAY
     Dates: start: 2013
  6. PRADAXA [Suspect]
     Active Substance: DABIGATRAN ETEXILATE MESYLATE
     Indication: Thrombosis prophylaxis

REACTIONS (3)
  - Foreign body in throat [Not Recovered/Not Resolved]
  - Oesophageal irritation [Unknown]
  - Oesophageal disorder [Unknown]

NARRATIVE: CASE EVENT DATE: 20220401
